FAERS Safety Report 11872647 (Version 1)
Quarter: 2015Q4

REPORT INFORMATION
  Report Type: Spontaneous
  Country: GB (occurrence: GB)
  Receive Date: 20151228
  Receipt Date: 20151228
  Transmission Date: 20160305
  Serious: Yes (Death, Hospitalization, Other)
  Sender: FDA-Public Use
  Company Number: GB-JNJFOC-20151024247

PATIENT
  Sex: Female

DRUGS (3)
  1. XEPLION [Suspect]
     Active Substance: PALIPERIDONE PALMITATE
     Indication: BIPOLAR DISORDER
     Route: 030
  2. XEPLION [Suspect]
     Active Substance: PALIPERIDONE PALMITATE
     Indication: BIPOLAR DISORDER
     Route: 030
  3. XEPLION [Suspect]
     Active Substance: PALIPERIDONE PALMITATE
     Indication: BIPOLAR DISORDER
     Route: 030

REACTIONS (12)
  - Parkinsonism [Unknown]
  - Heart valve incompetence [Unknown]
  - Cystitis [Unknown]
  - Weight decreased [Unknown]
  - Nausea [Unknown]
  - Muscle contracture [Unknown]
  - Hypertension [Unknown]
  - Pneumonia [Unknown]
  - Death [Fatal]
  - Sinus node dysfunction [Unknown]
  - Cerebrovascular accident [Unknown]
  - Impaired quality of life [Unknown]

NARRATIVE: CASE EVENT DATE: 20151002
